FAERS Safety Report 5104684-4 (Version None)
Quarter: 2006Q3

REPORT INFORMATION
  Report Type: 
  Country: None (occurrence: None)
  Receive Date: 20060912
  Receipt Date: 20060912
  Transmission Date: 20061208
  Serious: Yes (Hospitalization)
  Sender: FDA-Public Use
  Company Number: None

PATIENT
  Age: 59 Year
  Sex: Female
  Weight: 71.2147 kg

DRUGS (44)
  1. AVASTIN [Suspect]
     Indication: OVARIAN CANCER
     Dosage: 350.0MG Q 14 DAYS 042
     Dates: start: 20060825
  2. AVASTIN [Suspect]
     Indication: RECURRENT CANCER
     Dosage: 350.0MG Q 14 DAYS 042
     Dates: start: 20060825
  3. AVASTIN [Suspect]
     Indication: OVARIAN CANCER
     Dosage: 350.0MG Q 14 DAYS 042
     Dates: start: 20060811
  4. AVASTIN [Suspect]
     Indication: RECURRENT CANCER
     Dosage: 350.0MG Q 14 DAYS 042
     Dates: start: 20060811
  5. DOXIL [Suspect]
     Indication: OVARIAN CANCER
     Dosage: 70.0 MG Q 28 DAYS 042
     Dates: start: 20060825
  6. DOXIL [Suspect]
     Indication: RECURRENT CANCER
     Dosage: 70.0 MG Q 28 DAYS 042
     Dates: start: 20060825
  7. ABRAXANE [Suspect]
     Indication: OVARIAN CANCER
     Dosage: 117.0 MG Q D1, D8, D15 042
     Dates: start: 20060714
  8. ABRAXANE [Suspect]
     Indication: RECURRENT CANCER
     Dosage: 117.0 MG Q D1, D8, D15 042
     Dates: start: 20060714
  9. CARBOPLATIN [Suspect]
     Indication: OVARIAN CANCER
     Dosage: 340MG Q 28 DAYS 042
     Dates: start: 20060714
  10. CARBOPLATIN [Suspect]
     Indication: RECURRENT CANCER
     Dosage: 340MG Q 28 DAYS 042
     Dates: start: 20060714
  11. ALOXI [Concomitant]
  12. TAGAMET [Concomitant]
  13. ACETAMINOPHEN [Concomitant]
  14. ARANESP [Concomitant]
  15. AVASTIN [Concomitant]
  16. CARBOPLATIN [Concomitant]
  17. NEULASTA [Concomitant]
  18. DOXIL [Concomitant]
  19. DECADRON [Concomitant]
  20. NEUPOGEN [Concomitant]
  21. ZOCOR [Concomitant]
  22. MULTIVITAMIN [Concomitant]
  23. LEVAQUIN [Concomitant]
  24. BENEFIBER [Concomitant]
  25. AMBIEN [Concomitant]
  26. ACETAMINOPHEN [Concomitant]
  27. PRILOSEC [Concomitant]
  28. VICODIN [Concomitant]
  29. ENOXAPARIN SODIUM [Concomitant]
  30. PANTOPRAZOLE SODIUM [Concomitant]
  31. D5/0 45NS-KCL [Concomitant]
  32. LEVOFLOXACIN [Concomitant]
  33. ZOFRAN [Concomitant]
  34. HYDROMORPHONE HCL [Concomitant]
  35. ATIVAN [Concomitant]
  36. DULCOLAX [Concomitant]
  37. DEXTROSE [Concomitant]
  38. BLD GLUCOSE [Concomitant]
  39. HYPERAL AD CENTR [Concomitant]
  40. FAT EMULSION [Concomitant]
  41. MAGNESIUM SULFATE [Concomitant]
  42. CHLORESEPTIC SPRAY [Concomitant]
  43. ACETAMINOPHEN [Concomitant]
  44. TPN SUSPENSION [Concomitant]

REACTIONS (6)
  - ABDOMINAL DISTENSION [None]
  - ABDOMINAL PAIN [None]
  - COUGH [None]
  - NAUSEA [None]
  - PRODUCTIVE COUGH [None]
  - VOMITING [None]
